FAERS Safety Report 11989107 (Version 1)
Quarter: 2016Q1

REPORT INFORMATION
  Report Type: Spontaneous
  Country: US (occurrence: US)
  Receive Date: 20160202
  Receipt Date: 20160202
  Transmission Date: 20160526
  Serious: No
  Sender: FDA-Public Use
  Company Number: US-MYLANLABS-2014M1014074

PATIENT
  Sex: Female

DRUGS (1)
  1. FONDAPARINUX [Suspect]
     Active Substance: FONDAPARINUX
     Dosage: 10 MG, QD

REACTIONS (1)
  - Dermal cyst [Not Recovered/Not Resolved]
